FAERS Safety Report 17931873 (Version 3)
Quarter: 2020Q2

REPORT INFORMATION
  Report Type: Spontaneous
  Country: BE (occurrence: BE)
  Receive Date: 20200623
  Receipt Date: 20200630
  Transmission Date: 20200714
  Serious: Yes (Death, Hospitalization, Other)
  Sender: FDA-Public Use
  Company Number: BE-ROCHE-2629334

PATIENT
  Sex: Female

DRUGS (1)
  1. MABTHERA [Suspect]
     Active Substance: RITUXIMAB
     Indication: RHEUMATOID ARTHRITIS
     Route: 065
     Dates: end: 20190725

REACTIONS (4)
  - Pneumonia [Fatal]
  - Hip fracture [Unknown]
  - COVID-19 [Fatal]
  - Fall [Unknown]

NARRATIVE: CASE EVENT DATE: 2020
